FAERS Safety Report 11245632 (Version 1)
Quarter: 2015Q3

REPORT INFORMATION
  Report Type: Report from Study
  Country: BR (occurrence: BR)
  Receive Date: 20150707
  Receipt Date: 20150707
  Transmission Date: 20151125
  Serious: Yes (Other)
  Sender: FDA-Public Use
  Company Number: ALCN2015BR004269

PATIENT
  Age: 66 Year
  Sex: Female
  Weight: 62 kg

DRUGS (1)
  1. AZORGA [Suspect]
     Active Substance: BRINZOLAMIDE\TIMOLOL MALEATE
     Indication: GLAUCOMA
     Dosage: 1 GTT, BID
     Route: 047

REACTIONS (5)
  - Cataract [Unknown]
  - Retinal detachment [Unknown]
  - Corneal transplant [Recovering/Resolving]
  - Optic nerve injury [Unknown]
  - Blindness [Unknown]

NARRATIVE: CASE EVENT DATE: 20141203
